FAERS Safety Report 24800427 (Version 2)
Quarter: 2025Q1

REPORT INFORMATION
  Report Type: Spontaneous
  Country: US (occurrence: US)
  Receive Date: 20250102
  Receipt Date: 20250113
  Transmission Date: 20250409
  Serious: No
  Sender: ROCHE
  Company Number: US-ROCHE-10000170346

PATIENT
  Age: 78 Year
  Sex: Female

DRUGS (4)
  1. ACTEMRA ACTPEN [Suspect]
     Active Substance: TOCILIZUMAB
     Indication: Essential hypertension
     Route: 058
  2. Duloxetine H CPE 60 mg [Concomitant]
  3. Losartan POT TAB 50 mg [Concomitant]
  4. Morphine sul CP2 10 mg [Concomitant]

REACTIONS (9)
  - Gait inability [Unknown]
  - Depression [Unknown]
  - Fatigue [Unknown]
  - Decreased appetite [Unknown]
  - Disturbance in attention [Unknown]
  - Off label use [Unknown]
  - Balance disorder [Unknown]
  - Ill-defined disorder [Unknown]
  - Gait disturbance [Unknown]
